FAERS Safety Report 18966447 (Version 1)
Quarter: 2021Q1

REPORT INFORMATION
  Report Type: Spontaneous
  Country: IN (occurrence: IT)
  Receive Date: 20210303
  Receipt Date: 20210303
  Transmission Date: 20210420
  Serious: Yes (Life-Threatening, Hospitalization, Other)
  Sender: FDA-Public Use
  Company Number: IT-ELI_LILLY_AND_COMPANY-IT202102012593

PATIENT
  Age: 41 Year
  Sex: Female

DRUGS (1)
  1. GEMCITABINE HYDROCHLORIDE. [Suspect]
     Active Substance: GEMCITABINE HYDROCHLORIDE
     Indication: OVARIAN CANCER STAGE III
     Dosage: 1000 MG/M2, ON DAYS 1,8,15 IN A 28?DAY CYCLE
     Route: 065
     Dates: start: 201909, end: 202001

REACTIONS (7)
  - Off label use [Unknown]
  - Cardiomyopathy [Recovering/Resolving]
  - Atrioventricular block first degree [Recovering/Resolving]
  - Bundle branch block right [Recovering/Resolving]
  - Cardiotoxicity [Recovering/Resolving]
  - Cardiac failure congestive [Recovering/Resolving]
  - Mitral valve incompetence [Recovering/Resolving]

NARRATIVE: CASE EVENT DATE: 202001
